FAERS Safety Report 11968758 (Version 1)
Quarter: 2016Q1

REPORT INFORMATION
  Report Type: Other
  Country: GB (occurrence: GB)
  Receive Date: 20160128
  Receipt Date: 20160128
  Transmission Date: 20160526
  Serious: Yes (Other)
  Sender: FDA-Public Use
  Company Number: GB-CIPLA LTD.-2016GB00311

PATIENT

DRUGS (18)
  1. PEMETREXED [Suspect]
     Active Substance: PEMETREXED
     Dosage: 737.5 MG, 1 IN 21 DAYS
     Route: 042
     Dates: start: 20150807
  2. CARBOPLATIN. [Suspect]
     Active Substance: CARBOPLATIN
     Indication: NON-SMALL CELL LUNG CANCER STAGE III
     Dosage: UNK
     Route: 042
     Dates: start: 20150717
  3. PEMETREXED [Suspect]
     Active Substance: PEMETREXED
     Dosage: 737.5 MG, 1 IN 21 DAYS
     Route: 042
     Dates: start: 20150717
  4. PEMETREXED [Suspect]
     Active Substance: PEMETREXED
     Dosage: 737.5 MG, 1 IN 21 DAYS
     Route: 042
     Dates: start: 20150605
  5. CISPLATIN. [Suspect]
     Active Substance: CISPLATIN
     Indication: NON-SMALL CELL LUNG CANCER STAGE III
     Dosage: UNK
     Route: 042
     Dates: start: 20150626
  6. PEMETREXED [Suspect]
     Active Substance: PEMETREXED
     Dosage: 737.5 MG, 1 IN 21 DAYS
     Route: 042
     Dates: start: 20150828
  7. SENNA [Concomitant]
     Active Substance: SENNA LEAF\SENNOSIDES\SENNOSIDES A AND B
     Route: 065
  8. PEMETREXED [Suspect]
     Active Substance: PEMETREXED
     Dosage: 737.5 MG, 1 IN 21 DAYS
     Route: 042
     Dates: start: 20151106
  9. PEMETREXED [Suspect]
     Active Substance: PEMETREXED
     Dosage: 737.5 MG, 1 IN 21 DAYS
     Route: 042
     Dates: start: 20150626
  10. ONDANSETRON [Concomitant]
     Active Substance: ONDANSETRON
     Route: 065
  11. ORAMORPH [Concomitant]
     Active Substance: MORPHINE SULFATE
     Route: 065
  12. DEXAMETHASONE. [Concomitant]
     Active Substance: DEXAMETHASONE
     Route: 065
  13. RANITIDINE [Concomitant]
     Active Substance: RANITIDINE\RANITIDINE HYDROCHLORIDE
     Route: 065
  14. CARBOPLATIN. [Suspect]
     Active Substance: CARBOPLATIN
     Dosage: UNK
     Route: 042
     Dates: start: 20150807
  15. FOLIC ACID. [Concomitant]
     Active Substance: FOLIC ACID
     Route: 065
  16. MST CONTINUS [Concomitant]
     Active Substance: MORPHINE SULFATE
     Route: 065
  17. PARACETAMOL [Concomitant]
     Active Substance: ACETAMINOPHEN
     Route: 065
  18. PEMETREXED [Suspect]
     Active Substance: PEMETREXED
     Indication: NON-SMALL CELL LUNG CANCER STAGE III
     Dosage: 737.5 MG, 1 IN 21 DAYS
     Route: 042
     Dates: start: 20151016

REACTIONS (1)
  - Renal impairment [Not Recovered/Not Resolved]

NARRATIVE: CASE EVENT DATE: 20150915
